FAERS Safety Report 10018156 (Version 2)
Quarter: 2014Q1

REPORT INFORMATION
  Report Type: Spontaneous
  Country: US (occurrence: US)
  Receive Date: 20140318
  Receipt Date: 20140318
  Transmission Date: 20141002
  Serious: Yes (Death, Hospitalization)
  Sender: FDA-Public Use
  Company Number: US-BRISTOL-MYERS SQUIBB COMPANY-19059971

PATIENT
  Age: 73 Year
  Sex: Male

DRUGS (1)
  1. ERBITUX SOLN FOR INF [Suspect]
     Indication: HEAD AND NECK CANCER
     Dosage: 1DF=8CC-
     Route: 042
     Dates: start: 20130625, end: 20130625

REACTIONS (1)
  - Infusion related reaction [Fatal]
